FAERS Safety Report 5593326-X (Version None)
Quarter: 2008Q1

REPORT INFORMATION
  Report Type: 
  Country: None (occurrence: None)
  Receive Date: 20080116
  Receipt Date: 20080110
  Transmission Date: 20080703
  Serious: Yes (Life-Threatening, Hospitalization)
  Sender: FDA-Public Use
  Company Number: B0502680A

PATIENT
  Age: 87 Year
  Sex: Female

DRUGS (15)
  1. VALACYCLOVIR [Suspect]
     Dosage: 6TAB PER DAY
     Dates: start: 20070511, end: 20070515
  2. TAREG [Suspect]
     Route: 048
     Dates: end: 20070515
  3. NEURONTIN [Concomitant]
     Dosage: 300MG PER DAY
     Route: 048
     Dates: start: 20070511, end: 20070515
  4. TOPALGIC ( FRANCE ) [Concomitant]
     Dosage: 2UNIT PER DAY
     Route: 048
     Dates: start: 20070511, end: 20070515
  5. PARACETAMOL [Concomitant]
     Dosage: 1G FOUR TIMES PER DAY
     Route: 048
     Dates: start: 20070511, end: 20070515
  6. LEVOTHYROX [Concomitant]
     Dosage: 75MG PER DAY
     Route: 048
     Dates: end: 20070515
  7. ARICEPT [Concomitant]
     Dosage: 1UNIT PER DAY
     Dates: end: 20070515
  8. MEMANTINE HCL [Concomitant]
     Dosage: 1UNIT PER DAY
     Route: 048
     Dates: end: 20070515
  9. NEULEPTIL [Concomitant]
     Dosage: 6DROP PER DAY
     Route: 048
     Dates: end: 20070515
  10. ZOPICLONE [Concomitant]
     Dosage: 1UNIT PER DAY
     Route: 048
     Dates: end: 20070515
  11. EFFEXOR [Concomitant]
     Dosage: 2UNIT PER DAY
     Route: 048
     Dates: end: 20070515
  12. ALPRAZOLAM [Concomitant]
     Dosage: 2UNIT PER DAY
     Route: 048
     Dates: end: 20070515
  13. INEXIUM [Concomitant]
     Dosage: 1UNIT PER DAY
     Route: 048
     Dates: end: 20070515
  14. CALCIUM GLUCONATE [Concomitant]
     Dosage: 1UNIT PER DAY
     Dates: end: 20070515
  15. VITAMINE D3 [Concomitant]
     Dosage: 1UNIT PER DAY
     Dates: end: 20070515

REACTIONS (24)
  - ACIDOSIS [None]
  - ACUTE RESPIRATORY DISTRESS SYNDROME [None]
  - ALANINE AMINOTRANSFERASE INCREASED [None]
  - ALTERED STATE OF CONSCIOUSNESS [None]
  - ASPARTATE AMINOTRANSFERASE INCREASED [None]
  - BLOOD CREATINE PHOSPHOKINASE INCREASED [None]
  - BLOOD CREATININE INCREASED [None]
  - COMA [None]
  - DEHYDRATION [None]
  - DISTURBANCE IN ATTENTION [None]
  - FLUID RETENTION [None]
  - HYPERCAPNIA [None]
  - HYPERHIDROSIS [None]
  - HYPERKALAEMIA [None]
  - HYPOXIA [None]
  - INFLAMMATION [None]
  - LUNG DISORDER [None]
  - METABOLIC DISORDER [None]
  - OXYGEN SATURATION DECREASED [None]
  - PROTHROMBIN LEVEL DECREASED [None]
  - RASH MACULAR [None]
  - RENAL FAILURE ACUTE [None]
  - SHOCK [None]
  - SODIUM RETENTION [None]
